FAERS Safety Report 4786847-0 (Version None)
Quarter: 2005Q3

REPORT INFORMATION
  Report Type: 
  Country: None (occurrence: None)
  Receive Date: 20050930
  Receipt Date: 20050920
  Transmission Date: 20060218
  Serious: Yes (Hospitalization, Other)
  Sender: FDA-Public Use
  Company Number: HQWYE548320SEP05

PATIENT
  Age: 76 Year
  Sex: Male

DRUGS (6)
  1. PROPRANOLOL HCL [Suspect]
     Dosage: 80 MG 1X PER 1 DAY ORAL; 20 MG 2X PER 1 DAY ORAL
     Route: 048
     Dates: end: 20050507
  2. PROPRANOLOL HCL [Suspect]
     Dosage: 80 MG 1X PER 1 DAY ORAL; 20 MG 2X PER 1 DAY ORAL
     Route: 048
     Dates: start: 20050507
  3. OMEPRAZOLE [Concomitant]
  4. SPIRONOLACTONE [Concomitant]
  5. FUROSEMIDE [Concomitant]
  6. LANTUS (INSULIN GLARGINE), UNSPECIFIED) [Concomitant]

REACTIONS (9)
  - ATRIOVENTRICULAR BLOCK FIRST DEGREE [None]
  - ELECTROCARDIOGRAM PR PROLONGATION [None]
  - HYPOTENSION [None]
  - LOSS OF CONSCIOUSNESS [None]
  - MALAISE [None]
  - RECTAL HAEMORRHAGE [None]
  - SINUS BRADYCARDIA [None]
  - SUPRAVENTRICULAR EXTRASYSTOLES [None]
  - SYNCOPE VASOVAGAL [None]
